FAERS Safety Report 23194109 (Version 1)
Quarter: 2023Q4

REPORT INFORMATION
  Report Type: Spontaneous
  Country: US (occurrence: US)
  Receive Date: 20231117
  Receipt Date: 20231117
  Transmission Date: 20240110
  Serious: Yes (Life-Threatening, Hospitalization, Other)
  Sender: FDA-Public Use
  Company Number: US-drreddys-SPO/USA/23/0183328

PATIENT
  Age: 32 Year
  Sex: Male

DRUGS (8)
  1. PROPOFOL [Suspect]
     Active Substance: PROPOFOL
     Indication: General anaesthesia
     Route: 042
  2. PROPOFOL [Suspect]
     Active Substance: PROPOFOL
     Route: 042
  3. REMIFENTANIL [Suspect]
     Active Substance: REMIFENTANIL
     Indication: General anaesthesia
     Route: 042
  4. REMIFENTANIL [Suspect]
     Active Substance: REMIFENTANIL
  5. MANNITOL [Concomitant]
     Active Substance: MANNITOL
     Indication: Product used for unknown indication
  6. LIDOCAINE [Concomitant]
     Active Substance: LIDOCAINE
     Indication: General anaesthesia
  7. DEXAMETHASONE [Concomitant]
     Active Substance: DEXAMETHASONE
     Indication: Product used for unknown indication
  8. ROCURONIUM [Concomitant]
     Active Substance: ROCURONIUM BROMIDE
     Indication: General anaesthesia

REACTIONS (6)
  - Lactic acidosis [Recovering/Resolving]
  - Neuroleptic malignant syndrome [Recovering/Resolving]
  - Serotonin syndrome [Recovering/Resolving]
  - Hyperthermia malignant [Recovering/Resolving]
  - Sepsis [Recovering/Resolving]
  - Rhabdomyolysis [Recovering/Resolving]
